FAERS Safety Report 5680259-3 (Version None)
Quarter: 2008Q1

REPORT INFORMATION
  Report Type: 
  Country: None (occurrence: None)
  Receive Date: 20080326
  Receipt Date: 20080318
  Transmission Date: 20080703
  Serious: Yes (Other)
  Sender: FDA-Public Use
  Company Number: FR-JNJFOC-20080305161

PATIENT
  Sex: Female
  Weight: 67 kg

DRUGS (2)
  1. REMICADE [Suspect]
     Indication: CROHN'S DISEASE
     Route: 042
  2. IMUREL [Concomitant]
     Indication: CROHN'S DISEASE

REACTIONS (1)
  - ADENOCARCINOMA [None]
